FAERS Safety Report 19097901 (Version 1)
Quarter: 2021Q2

REPORT INFORMATION
  Report Type: Spontaneous
  Country: US (occurrence: US)
  Receive Date: 20210406
  Receipt Date: 20210406
  Transmission Date: 20210717
  Serious: No
  Sender: FDA-Public Use
  Company Number: US-VERTEX PHARMACEUTICALS-2020-004153

PATIENT
  Age: 35 Year
  Sex: Female

DRUGS (11)
  1. PULMOZYME [Concomitant]
     Active Substance: DORNASE ALFA
  2. ZITHROMAX [Concomitant]
     Active Substance: AZITHROMYCIN DIHYDRATE
  3. PROZAC [Concomitant]
     Active Substance: FLUOXETINE HYDROCHLORIDE
     Dosage: UNK
  4. METHYLPHENIDATE. [Concomitant]
     Active Substance: METHYLPHENIDATE
     Dosage: UNK, TID
     Route: 048
  5. INSULIN [Concomitant]
     Active Substance: INSULIN NOS
     Dosage: 17 UNITS
  6. CLONIDINE. [Concomitant]
     Active Substance: CLONIDINE
     Dosage: QHS
     Route: 048
  7. PANCREASE [PANCREATIN] [Concomitant]
  8. ALPRAZOLAM. [Suspect]
     Active Substance: ALPRAZOLAM
     Indication: PRODUCT USED FOR UNKNOWN INDICATION
     Dosage: UNK, TID
     Route: 048
  9. ALBUTEROL [SALBUTAMOL] [Concomitant]
     Active Substance: ALBUTEROL
  10. NOVOLOG [Concomitant]
     Active Substance: INSULIN ASPART
     Dosage: 1 UNIT/ 15 CARBS
  11. TRIKAFTA [Suspect]
     Active Substance: ELEXACAFTOR\IVACAFTOR\TEZACAFTOR
     Indication: CYSTIC FIBROSIS
     Dosage: 2 TABS (100MG ELEXA/ 50MG TEZA /IVA 75MG IVA) AM; 1 TAB (150MG IVA) PM
     Route: 048
     Dates: start: 201910

REACTIONS (18)
  - Memory impairment [Unknown]
  - Rash [Not Recovered/Not Resolved]
  - Blood glucose fluctuation [Unknown]
  - Fatigue [Not Recovered/Not Resolved]
  - Amnesia [Not Recovered/Not Resolved]
  - Influenza like illness [Not Recovered/Not Resolved]
  - Alopecia [Unknown]
  - Eczema [Unknown]
  - Abdominal pain upper [Not Recovered/Not Resolved]
  - Rales [Not Recovered/Not Resolved]
  - Skin exfoliation [Unknown]
  - Polymenorrhoea [Not Recovered/Not Resolved]
  - Productive cough [Recovering/Resolving]
  - Headache [Not Recovered/Not Resolved]
  - Paranasal sinus hypersecretion [Not Recovered/Not Resolved]
  - Sinus congestion [Not Recovered/Not Resolved]
  - Pruritus [Not Recovered/Not Resolved]
  - Upper-airway cough syndrome [Not Recovered/Not Resolved]

NARRATIVE: CASE EVENT DATE: 202003
